FAERS Safety Report 11723419 (Version 3)
Quarter: 2016Q1

REPORT INFORMATION
  Report Type: Report from Study
  Country: CN (occurrence: CN)
  Receive Date: 20151111
  Receipt Date: 20160202
  Transmission Date: 20160525
  Serious: Yes (Other)
  Sender: FDA-Public Use
  Company Number: PHHY2015CN146090

PATIENT
  Age: 44 Year
  Sex: Male
  Weight: 65 kg

DRUGS (148)
  1. TACROLIMUS. [Suspect]
     Active Substance: TACROLIMUS
     Indication: RENAL TRANSPLANT
     Dosage: 6.5 MG, QD
     Route: 048
     Dates: start: 20151019, end: 20151020
  2. TACROLIMUS. [Suspect]
     Active Substance: TACROLIMUS
     Dosage: 5 MG, QD
     Route: 048
     Dates: start: 20151104, end: 20151105
  3. MEROPENEM. [Concomitant]
     Active Substance: MEROPENEM
     Dosage: 500 MG, PRN
     Route: 042
     Dates: start: 20151019, end: 20151019
  4. SODIUM CHLORIDE. [Concomitant]
     Active Substance: SODIUM CHLORIDE
     Indication: DEVICE ISSUE
     Dosage: 100 ML, QD
     Route: 042
     Dates: start: 20151019, end: 20151030
  5. AMBROXAN//AMBROXOL HYDROCHLORIDE [Concomitant]
     Dosage: 30 MG, QD
     Route: 042
     Dates: start: 20151019, end: 20151019
  6. 15-AMINO ACID [Concomitant]
     Dosage: 67 G, QD
     Route: 042
     Dates: start: 20151019, end: 20151025
  7. FRUSEMID//FUROSEMIDE [Concomitant]
     Dosage: 80 MG, QD
     Route: 042
     Dates: start: 20151023, end: 20151028
  8. METOPROLOL TARTRATE. [Concomitant]
     Active Substance: METOPROLOL TARTRATE
     Dosage: 25 MG, PRN
     Route: 048
     Dates: start: 20151023, end: 20151023
  9. NIFEDIPINE. [Concomitant]
     Active Substance: NIFEDIPINE
     Dosage: 30 MG, PRN
     Route: 048
     Dates: start: 20151019, end: 20151019
  10. OMEPRAZOL//OMEPRAZOLE [Concomitant]
     Indication: PROPHYLAXIS
     Dosage: 40 MG, BID
     Route: 042
     Dates: start: 20151020, end: 20151103
  11. ORNIDAZOLE AND SODIUM CHLORIDE [Concomitant]
     Indication: ANTI-INFECTIVE THERAPY
     Dosage: 100 ML, BID
     Route: 042
     Dates: start: 20151019, end: 20151020
  12. ORNIDAZOLE AND SODIUM CHLORIDE [Concomitant]
     Indication: INFLAMMATION
     Dosage: 100 UNK, UNK
     Route: 042
     Dates: start: 20151018, end: 20151019
  13. PHENOBARBITAL. [Concomitant]
     Active Substance: PHENOBARBITAL
     Indication: SEDATION
     Dosage: 100 MG, PRN
     Route: 030
     Dates: start: 20151018, end: 20151018
  14. ALISTA//ALPROSTADIL [Concomitant]
     Dosage: 10 UG, QD
     Route: 042
     Dates: start: 20151002, end: 20151002
  15. SCOPOLAMIN [Concomitant]
     Indication: PRODUCT USED FOR UNKNOWN INDICATION
     Dosage: 300 UG, PRN
     Route: 030
     Dates: start: 20151018, end: 20151018
  16. PROMETHAZINE//PROMETHAZINE HYDROCHLORIDE [Concomitant]
     Dosage: 25 MG, PRN
     Route: 030
     Dates: start: 20151109, end: 20151109
  17. BASILIXIMAB [Suspect]
     Active Substance: BASILIXIMAB
     Dosage: 20 MG, QD
     Route: 065
     Dates: start: 20151022, end: 20151022
  18. MEROPENEM. [Concomitant]
     Active Substance: MEROPENEM
     Indication: INFLAMMATION
     Dosage: 500 MG, BID
     Route: 042
     Dates: start: 20151018, end: 20151018
  19. IRON SUCROSE [Concomitant]
     Active Substance: IRON SUCROSE
     Dosage: 1 OT, PRN
     Route: 042
     Dates: start: 20151020, end: 20151114
  20. SODIUM CHLORIDE. [Concomitant]
     Active Substance: SODIUM CHLORIDE
     Indication: FLUID REPLACEMENT
     Dosage: 100 ML, PRN
     Route: 042
     Dates: start: 20151018, end: 20151018
  21. 15-AMINO ACID [Concomitant]
     Indication: SUPPLEMENTATION THERAPY
     Dosage: 67 G, QD
     Route: 042
     Dates: start: 20151018, end: 20151018
  22. 15-AMINO ACID [Concomitant]
     Indication: NUTRITIONAL SUPPLEMENTATION
     Dosage: 67 G, PRN
     Route: 042
     Dates: start: 20151019, end: 20151019
  23. COMPOUND COENZYME [Concomitant]
     Dosage: 2 OT, QD
     Route: 042
     Dates: start: 20151019, end: 20151025
  24. COMPOUND GLUTAMINE GRANULES [Concomitant]
     Indication: PROPHYLAXIS
     Dosage: 67 MG, PRN
     Route: 048
     Dates: start: 20151020, end: 20151020
  25. DOPAMINE HYDROCHLORIDE. [Concomitant]
     Active Substance: DOPAMINE HYDROCHLORIDE
     Dosage: 240 MG, PRN
     Route: 042
     Dates: start: 20151019, end: 20151019
  26. FELODIPIN [Concomitant]
     Active Substance: FELODIPINE
     Indication: HYPERTENSION
     Dosage: 5 MG, BID
     Route: 048
     Dates: start: 20151023, end: 20151114
  27. FRUSEMID//FUROSEMIDE [Concomitant]
     Dosage: 120 MG, PRN
     Route: 048
     Dates: start: 20151018, end: 20151018
  28. FRUSEMID//FUROSEMIDE [Concomitant]
     Dosage: 160 MG, PRN
     Route: 042
     Dates: start: 20151019, end: 20151019
  29. HUMAN ALBUMIN [Concomitant]
     Active Substance: ALBUMIN (HUMAN)
     Dosage: 20 G, PRN
     Route: 042
     Dates: start: 20151020, end: 20151020
  30. LEVOCARNITINE. [Concomitant]
     Active Substance: LEVOCARNITINE
     Dosage: 2 OT, PRN
     Route: 042
     Dates: start: 20151027, end: 20151027
  31. L-GLUTAMINE//GLUTAMIC ACID [Concomitant]
     Dosage: 670 MG, TID
     Route: 042
     Dates: start: 20151029, end: 20151029
  32. METOPROLOL TARTRATE. [Concomitant]
     Active Substance: METOPROLOL TARTRATE
     Dosage: 25 MG, PRN
     Route: 048
     Dates: start: 20151021, end: 20151021
  33. METOPROLOL TARTRATE. [Concomitant]
     Active Substance: METOPROLOL TARTRATE
     Dosage: 23.75 MG, PRN
     Route: 048
     Dates: start: 20151025, end: 20151025
  34. MICARDIS [Concomitant]
     Active Substance: TELMISARTAN
     Indication: HYPERTENSION
     Dosage: 80 MG, BID
     Route: 048
     Dates: start: 20151023, end: 20151114
  35. NIFEDIPINE. [Concomitant]
     Active Substance: NIFEDIPINE
     Dosage: 30 MG, PRN
     Dates: start: 20151018, end: 20151018
  36. NIFEDIPINE. [Concomitant]
     Active Substance: NIFEDIPINE
     Dosage: 30 MG, PRN
     Route: 048
     Dates: start: 20151021, end: 20151021
  37. METHYLPREDISOLONE [Concomitant]
     Active Substance: METHYLPREDNISOLONE
     Indication: TRANSPLANT REJECTION
     Dosage: 400 MG, QD
     Route: 065
     Dates: start: 20151021, end: 20151021
  38. METHYLPREDISOLONE [Concomitant]
     Active Substance: METHYLPREDNISOLONE
     Dosage: 500 MG, QD
     Route: 065
     Dates: start: 20151018, end: 20151020
  39. CETIRIZINE [Concomitant]
     Active Substance: CETIRIZINE HYDROCHLORIDE
     Indication: HYPERSENSITIVITY
     Dosage: 10 MG, PRN
     Route: 048
     Dates: start: 20151026, end: 20151026
  40. MYFORTIC [Suspect]
     Active Substance: MYCOPHENOLATE SODIUM
     Dosage: 900 MG, QD
     Route: 048
     Dates: start: 20151111
  41. BASILIXIMAB [Suspect]
     Active Substance: BASILIXIMAB
     Indication: RENAL TRANSPLANT
     Dosage: 20 MG, QD
     Route: 065
     Dates: start: 20151018, end: 20151018
  42. PREDNISONE. [Suspect]
     Active Substance: PREDNISONE
     Indication: RENAL TRANSPLANT
     Dosage: 20 MG, QD
     Route: 048
     Dates: start: 20151021, end: 20151109
  43. PREDNISONE. [Suspect]
     Active Substance: PREDNISONE
     Indication: IMMUNOSUPPRESSANT DRUG THERAPY
     Dosage: 15 MG, QD
     Route: 048
     Dates: start: 20151110
  44. TACROLIMUS. [Suspect]
     Active Substance: TACROLIMUS
     Indication: IMMUNOSUPPRESSANT DRUG THERAPY
     Dosage: 4.5 MG, QD
     Route: 048
     Dates: start: 20151021, end: 20151025
  45. TACROLIMUS. [Suspect]
     Active Substance: TACROLIMUS
     Dosage: 4 MG, QD
     Route: 048
     Dates: start: 20151109, end: 20151110
  46. MEROPENEM. [Concomitant]
     Active Substance: MEROPENEM
     Indication: PROPHYLAXIS
     Dosage: 500 MG, TID
     Route: 042
     Dates: start: 20151019, end: 20151026
  47. SODIUM CHLORIDE. [Concomitant]
     Active Substance: SODIUM CHLORIDE
     Dosage: 1500 ML, PRN
     Route: 042
     Dates: start: 20151020, end: 20151020
  48. CARBOHYDRATES NOS W/ELECTROLYTES NOS [Concomitant]
     Indication: ELECTROLYTE SUBSTITUTION THERAPY
     Dosage: 500 ML, PRN
     Route: 042
     Dates: start: 20151011, end: 20151018
  49. CREATINE PHOSPHATE SODIUM [Concomitant]
     Active Substance: CREATINE
     Indication: PROPHYLAXIS
     Dosage: 2 G, QD
     Route: 042
     Dates: start: 20151022, end: 20151027
  50. DICLOFENAC SODIUM W/LIDOCAINE HYDROCHLORIDE [Concomitant]
     Indication: SEIZURE
     Dosage: 1 OT, PRN
     Route: 030
     Dates: start: 20151019, end: 20151019
  51. DICLOFENAC SODIUM W/LIDOCAINE HYDROCHLORIDE [Concomitant]
     Indication: ANALGESIC THERAPY
     Dosage: 1 OT, PRN
     Route: 030
     Dates: start: 20151018, end: 20151018
  52. DOPAMINE HYDROCHLORIDE. [Concomitant]
     Active Substance: DOPAMINE HYDROCHLORIDE
     Indication: HYPERTENSION
     Dosage: 180 MG, PRN
     Route: 042
     Dates: start: 20151020, end: 20151020
  53. L-GLUTAMINE//GLUTAMIC ACID [Concomitant]
     Indication: PROPHYLAXIS
     Dosage: 1340 MG, PRN
     Route: 048
     Dates: start: 20151019, end: 20151019
  54. NITRENDIPINE [Concomitant]
     Active Substance: NITRENDIPINE
     Dosage: 10 MG, PRN
     Route: 048
     Dates: start: 20151021, end: 20151021
  55. POLYENE PHOSPHATIDYLCHOLINE [Concomitant]
     Active Substance: PHOSPHOLIPID
     Indication: PROPHYLAXIS
     Dosage: 228 MG, TID
     Route: 048
     Dates: start: 20151113
  56. MYCOPHENOLATE SODIUM [Concomitant]
     Active Substance: MYCOPHENOLATE SODIUM
     Indication: TRANSPLANT REJECTION
     Dosage: 1440 MG, QD
     Route: 065
     Dates: start: 20151019, end: 20151019
  57. MYCOPHENOLATE SODIUM [Concomitant]
     Active Substance: MYCOPHENOLATE SODIUM
     Dosage: 1080 MG, QD
     Route: 065
     Dates: start: 20151020, end: 20151110
  58. SODIUM CHLORIDE. [Concomitant]
     Active Substance: SODIUM CHLORIDE
     Dosage: 100 ML, PRN
     Route: 042
     Dates: start: 20151109, end: 20151109
  59. SODIUM CHLORIDE. [Concomitant]
     Active Substance: SODIUM CHLORIDE
     Dosage: 1500 ML, PRN
     Route: 042
     Dates: start: 20151018, end: 20151118
  60. CARBOHYDRATES NOS W/ELECTROLYTES NOS [Concomitant]
     Dosage: 500 ML, PRN
     Route: 042
     Dates: start: 20151019, end: 20151019
  61. COMPOUND COENZYME [Concomitant]
     Dosage: 2 OT, PRN
     Route: 042
     Dates: start: 20151019, end: 20151019
  62. COMPOUND IPRATROPIUM BROMIDE [Concomitant]
     Indication: PRODUCTIVE COUGH
     Dosage: 1 OT, TID
     Route: 055
     Dates: start: 20151019, end: 20151104
  63. DICLOFENAC SODIUM W/LIDOCAINE HYDROCHLORIDE [Concomitant]
     Dosage: 1 OT, QD
     Route: 030
     Dates: start: 20151022, end: 20151022
  64. FELODIPIN [Concomitant]
     Active Substance: FELODIPINE
     Dosage: 1 OT, QD
     Route: 048
     Dates: start: 20151113
  65. MAGNESIUM SULPHATE [Concomitant]
     Active Substance: MAGNESIUM SULFATE
     Indication: PRODUCT USED FOR UNKNOWN INDICATION
     Dosage: 1000 ML, PRN
     Route: 065
     Dates: start: 20151018, end: 20151018
  66. METOPROLOL TARTRATE. [Concomitant]
     Active Substance: METOPROLOL TARTRATE
     Indication: HYPERTENSION
     Dosage: 25 MG, PRN
     Route: 048
     Dates: start: 20151019, end: 20151019
  67. ORNIDAZOLE AND SODIUM CHLORIDE [Concomitant]
     Dosage: 500 MG, BID
     Route: 042
     Dates: start: 20151019, end: 20151019
  68. PANTOPRAZOLE [Concomitant]
     Active Substance: PANTOPRAZOLE SODIUM
     Dosage: 40 MG, QD
     Route: 048
     Dates: start: 20151113
  69. TRIMETAZIDINE DIHYDROCHLORIDE [Concomitant]
     Active Substance: TRIMETAZIDINE DIHYDROCHLORIDE
     Indication: PROPHYLAXIS
     Dosage: 20 MG, TID
     Route: 048
     Dates: start: 20151021, end: 20151114
  70. METHYLPREDNISOLONE. [Suspect]
     Active Substance: METHYLPREDNISOLONE
     Indication: RENAL TRANSPLANT
     Dosage: 500 MG, UNK
     Route: 042
     Dates: start: 20151018, end: 20151020
  71. METHYLPREDNISOLONE. [Suspect]
     Active Substance: METHYLPREDNISOLONE
     Indication: IMMUNOSUPPRESSANT DRUG THERAPY
     Dosage: 400 MG, UNK
     Route: 042
     Dates: start: 20151021, end: 20151021
  72. MEROPENEM. [Concomitant]
     Active Substance: MEROPENEM
     Dosage: 500 MG, PRN
     Route: 042
     Dates: start: 20151018, end: 20151018
  73. MUCOSOLVAN [Concomitant]
     Active Substance: AMBROXOL HYDROCHLORIDE
     Indication: PROPHYLAXIS
     Dosage: 30 MG, TID
     Route: 042
     Dates: start: 20151019, end: 20151104
  74. SODIUM CHLORIDE. [Concomitant]
     Active Substance: SODIUM CHLORIDE
     Dosage: 100 ML, PRN
     Route: 042
     Dates: start: 20151020, end: 20151021
  75. SODIUM CHLORIDE. [Concomitant]
     Active Substance: SODIUM CHLORIDE
     Dosage: 100 ML, PRN
     Route: 042
     Dates: start: 20151120, end: 20151120
  76. CEFOTIAM [Concomitant]
     Active Substance: CEFOTIAM
     Indication: ANTI-INFECTIVE THERAPY
     Dosage: 2000 MG, BID
     Route: 042
  77. CREATINE PHOSPHATE SODIUM [Concomitant]
     Active Substance: CREATINE
     Dosage: 2 DF, PRN
     Route: 042
     Dates: start: 20151022, end: 20151022
  78. DICLOFENAC SODIUM W/LIDOCAINE HYDROCHLORIDE [Concomitant]
     Dosage: 1 OT, PRN
     Dates: start: 20151021, end: 20151021
  79. FRUSEMID//FUROSEMIDE [Concomitant]
     Dosage: 40 MG, QD
     Route: 042
     Dates: start: 20151031, end: 20151110
  80. FRUSEMID//FUROSEMIDE [Concomitant]
     Dosage: 240 MG, PRN
     Route: 042
     Dates: start: 20151029, end: 20151029
  81. HUMAN ALBUMIN [Concomitant]
     Active Substance: ALBUMIN (HUMAN)
     Indication: SUPPLEMENTATION THERAPY
     Dosage: 10 G, PRN
     Route: 042
     Dates: start: 20151018, end: 20151018
  82. LEVOCARNITINE. [Concomitant]
     Active Substance: LEVOCARNITINE
     Indication: PRODUCT USED FOR UNKNOWN INDICATION
     Dosage: 2 OT, PRN
     Route: 042
     Dates: start: 20151022, end: 20151022
  83. LOW MOLECULE HEPARIN CALCIUM [Concomitant]
     Indication: COAGULOPATHY
     Dosage: 0.2 ML, PRN
     Route: 065
     Dates: start: 20151026, end: 20151026
  84. NITRENDIPINE [Concomitant]
     Active Substance: NITRENDIPINE
     Dosage: 20 MG, PRN
     Route: 048
     Dates: start: 20151018, end: 20151018
  85. TELMISARTAN. [Concomitant]
     Active Substance: TELMISARTAN
     Dosage: 80 MG, BID
     Route: 048
     Dates: start: 20151019, end: 20151019
  86. TELMISARTAN. [Concomitant]
     Active Substance: TELMISARTAN
     Dosage: 80 MG, PRN
     Route: 048
     Dates: start: 20151023, end: 20151023
  87. TELMISARTAN. [Concomitant]
     Active Substance: TELMISARTAN
     Dosage: 80 MG, PRN
     Route: 048
     Dates: start: 20151019, end: 20151019
  88. ALISTA//ALPROSTADIL [Concomitant]
     Indication: PROPHYLAXIS
     Dosage: 10 UG, QD
     Route: 042
     Dates: start: 20151020, end: 20151031
  89. VANCOMYCIN HYDROCHLORIDE. [Concomitant]
     Active Substance: VANCOMYCIN HYDROCHLORIDE
     Indication: INFLAMMATION
     Dosage: 500 MG, BID
     Route: 042
     Dates: start: 20151026, end: 20151102
  90. CETIRIZINE [Concomitant]
     Active Substance: CETIRIZINE HYDROCHLORIDE
     Dosage: 10 MG, PRN
     Route: 048
     Dates: start: 20151109, end: 20151109
  91. TACROLIMUS. [Suspect]
     Active Substance: TACROLIMUS
     Dosage: 5.5 MG, QD
     Route: 048
     Dates: start: 20151026, end: 20151103
  92. TACROLIMUS. [Suspect]
     Active Substance: TACROLIMUS
     Dosage: 4.5 MG, QD
     Route: 048
     Dates: start: 20151111
  93. MUCOSOLVAN [Concomitant]
     Active Substance: AMBROXOL HYDROCHLORIDE
     Indication: SPUTUM RETENTION
  94. SODIUM CHLORIDE. [Concomitant]
     Active Substance: SODIUM CHLORIDE
     Dosage: 100 ML, PRN
     Route: 042
     Dates: start: 20151019, end: 20151019
  95. MAGNESIUM [Concomitant]
     Active Substance: MAGNESIUM
     Indication: OEDEMA
     Dosage: 100 ML, PRN
     Route: 065
     Dates: start: 20151108, end: 20151108
  96. BUDESONIDE. [Concomitant]
     Active Substance: BUDESONIDE
     Indication: PRODUCTIVE COUGH
     Dosage: 1 OT, TID
     Route: 055
     Dates: start: 20151019, end: 20151104
  97. CEPHAZOLINE SODIUM [Concomitant]
     Indication: SKIN TEST
     Dosage: 500 MG, PRN
     Route: 065
     Dates: start: 20151022, end: 20151026
  98. COMPOUND COENZYME [Concomitant]
     Indication: SUPPLEMENTATION THERAPY
     Dosage: 2 OT, QD
     Route: 042
     Dates: start: 20151018, end: 20151018
  99. DOXOFYLLINE [Concomitant]
     Active Substance: DOXOFYLLINE
     Indication: WHEEZING
     Dosage: 200 MG, QD
     Route: 042
     Dates: start: 20151018, end: 20151019
  100. FRUSEMID//FUROSEMIDE [Concomitant]
     Dosage: 120 MG, PRN
     Route: 042
     Dates: start: 20151021, end: 20151021
  101. FRUSEMID//FUROSEMIDE [Concomitant]
     Dosage: 160 MG, PRN
     Route: 042
     Dates: start: 20151020, end: 20151020
  102. HUMAN ALBUMIN [Concomitant]
     Active Substance: ALBUMIN (HUMAN)
     Dosage: 20 G, PRN
     Route: 042
     Dates: start: 20151019, end: 20151019
  103. LOW MOLECULE HEPARIN [Concomitant]
     Indication: COAGULOPATHY
     Dosage: 2500 IU, PRN
     Route: 065
     Dates: start: 20151109, end: 20151109
  104. NIFEDIPINE. [Concomitant]
     Active Substance: NIFEDIPINE
     Dosage: 30 MG, PRN
     Route: 042
     Dates: start: 20151023, end: 20151023
  105. NITRENDIPINE [Concomitant]
     Active Substance: NITRENDIPINE
     Dosage: 10 MG, QD
     Route: 048
     Dates: start: 20151023, end: 20151025
  106. ORNIDAZOLE AND SODIUM CHLORIDE [Concomitant]
     Dosage: 100 ML, PRN
     Route: 048
     Dates: start: 20151018, end: 20151018
  107. PANTOPRAZOLE [Concomitant]
     Active Substance: PANTOPRAZOLE SODIUM
     Indication: PROPHYLAXIS
     Dosage: 40 MG, QD
     Route: 048
     Dates: start: 20151103, end: 20151104
  108. TRIMETAZIDINE DIHYDROCHLORIDE [Concomitant]
     Active Substance: TRIMETAZIDINE DIHYDROCHLORIDE
     Dosage: 20 MG, TID
     Route: 048
     Dates: start: 20151021, end: 20151114
  109. VANCOMYCIN HYDROCHLORIDE. [Concomitant]
     Active Substance: VANCOMYCIN HYDROCHLORIDE
     Dosage: 500 MG, QD
     Route: 042
     Dates: start: 20151021, end: 20151101
  110. PROMETHAZINE//PROMETHAZINE HYDROCHLORIDE [Concomitant]
     Dosage: 25 MG, PRN
     Route: 030
     Dates: start: 20151102, end: 20151102
  111. TACROLIMUS. [Suspect]
     Active Substance: TACROLIMUS
     Dosage: 4.5 MG, QD
     Route: 048
     Dates: start: 20151106, end: 20151108
  112. IRON SUCROSE [Concomitant]
     Active Substance: IRON SUCROSE
     Indication: MINERAL SUPPLEMENTATION
     Dosage: 1 OT (VIAL), QD
     Route: 042
     Dates: start: 20151020, end: 20151020
  113. DICLOFENAC SODIUM W/LIDOCAINE HYDROCHLORIDE [Concomitant]
     Indication: ANALGESIC THERAPY
     Dosage: 1 OT (VIAL), QD
     Route: 030
     Dates: start: 20151022
  114. BETALOC [Concomitant]
     Active Substance: METOPROLOL TARTRATE
     Indication: PRODUCT USED FOR UNKNOWN INDICATION
     Dosage: 23.75 MG, QD
     Route: 048
  115. CARBOHYDRATES NOS W/ELECTROLYTES NOS [Concomitant]
     Dosage: 500 ML, QD
     Route: 042
     Dates: start: 20151019, end: 20151025
  116. CEFOTIAM [Concomitant]
     Active Substance: CEFOTIAM
     Indication: INFLAMMATION
  117. COMPOUND LIQUORICE [Concomitant]
     Indication: COUGH
     Dosage: 10 ML, TID
     Route: 048
     Dates: start: 20151029, end: 20151029
  118. DICLOFENAC SODIUM W/LIDOCAINE HYDROCHLORIDE [Concomitant]
     Dosage: 1 OT, QD
     Route: 042
     Dates: start: 20151022, end: 20151022
  119. DOXAZOSIN MESYLATE. [Concomitant]
     Active Substance: DOXAZOSIN MESYLATE
     Indication: HYPERTENSION
     Dosage: 4 MG, PRN
     Route: 048
     Dates: start: 20151025, end: 20151025
  120. FRUSEMID//FUROSEMIDE [Concomitant]
     Indication: POLYURIA
     Dosage: 20 MG, PRN
     Route: 042
     Dates: start: 20151120, end: 20151120
  121. NIFEDIPINE. [Concomitant]
     Active Substance: NIFEDIPINE
     Indication: HYPERTENSION
     Dosage: 30 MG, BID
     Route: 048
     Dates: start: 20151019, end: 20151019
  122. NITRENDIPINE [Concomitant]
     Active Substance: NITRENDIPINE
     Indication: HYPERTENSION
     Dosage: 10 MG, TID
     Route: 048
     Dates: start: 20151026, end: 20151106
  123. NITRENDIPINE [Concomitant]
     Active Substance: NITRENDIPINE
     Dosage: 10 MG, PRN
     Route: 048
     Dates: start: 20151019, end: 20151019
  124. NITRENDIPINE [Concomitant]
     Active Substance: NITRENDIPINE
     Dosage: 10 MG, PRN
     Route: 048
     Dates: start: 20151024, end: 20151024
  125. OMEPRAZOL//OMEPRAZOLE [Concomitant]
     Dosage: 40 MG, QD
     Route: 042
     Dates: start: 20151019, end: 20151020
  126. ALISTA//ALPROSTADIL [Concomitant]
     Dosage: 10 UG, QD
     Route: 042
     Dates: start: 20151102, end: 20151114
  127. VANCOMYCIN HYDROCHLORIDE. [Concomitant]
     Active Substance: VANCOMYCIN HYDROCHLORIDE
     Indication: INFECTION
     Dosage: 500 MG, QD
     Route: 042
     Dates: start: 20151026, end: 20151027
  128. MYCOPHENOLATE SODIUM [Concomitant]
     Active Substance: MYCOPHENOLATE SODIUM
     Dosage: 720 MG, QD
     Route: 065
     Dates: start: 20151109, end: 20151110
  129. CETIRIZINE [Concomitant]
     Active Substance: CETIRIZINE HYDROCHLORIDE
     Dosage: 10 MG, PRN
     Route: 048
     Dates: start: 20151102, end: 20151102
  130. MYFORTIC [Suspect]
     Active Substance: MYCOPHENOLATE SODIUM
     Indication: RENAL TRANSPLANT
     Dosage: 1440 MG, QD
     Route: 048
     Dates: start: 20151019
  131. MYFORTIC [Suspect]
     Active Substance: MYCOPHENOLATE SODIUM
     Indication: PROPHYLAXIS AGAINST TRANSPLANT REJECTION
     Dosage: 1080 MG, QD
     Route: 048
     Dates: start: 20151020, end: 20151110
  132. MYFORTIC [Suspect]
     Active Substance: MYCOPHENOLATE SODIUM
     Dosage: 720 MG, QD
     Route: 048
     Dates: start: 20151109, end: 20151110
  133. AMBROXAN//AMBROXOL HYDROCHLORIDE [Concomitant]
     Indication: PRODUCTIVE COUGH
     Dosage: 15 MG, TID
     Route: 055
     Dates: start: 20151019, end: 20151104
  134. DICLOFENAC SODIUM W/LIDOCAINE HYDROCHLORIDE [Concomitant]
     Dosage: 1 OT, QD
     Route: 030
     Dates: start: 20151022, end: 20151026
  135. DILTIAZEM HYDROCHLORIDE. [Concomitant]
     Active Substance: DILTIAZEM HYDROCHLORIDE
     Indication: PRODUCT USED FOR UNKNOWN INDICATION
     Dosage: 30 MG, BID
     Route: 048
     Dates: start: 20151019, end: 20151028
  136. DOXAZOSIN MESYLATE. [Concomitant]
     Active Substance: DOXAZOSIN MESYLATE
     Dosage: 4 MG, BID
     Route: 048
     Dates: start: 20151025, end: 20151113
  137. DOXOFYLLINE [Concomitant]
     Active Substance: DOXOFYLLINE
     Indication: COUGH
     Dosage: 200 MG, BID
     Route: 042
     Dates: start: 20151019, end: 20151104
  138. DOXOFYLLINE [Concomitant]
     Active Substance: DOXOFYLLINE
     Dosage: 200 MG, QD
     Route: 042
     Dates: start: 20151104, end: 20151107
  139. FRUSEMID//FUROSEMIDE [Concomitant]
     Dosage: 40 MG, PRN
     Route: 042
     Dates: start: 20151026, end: 20151027
  140. MUCOPOLYSACCHARIDE POLYSULFURIC ACI/01011201/ [Concomitant]
     Indication: PHLEBITIS
     Dosage: 14 G, PRN
     Route: 065
     Dates: start: 20151108, end: 20151108
  141. NIFEDIPINE. [Concomitant]
     Active Substance: NIFEDIPINE
     Dosage: 30 MG, PRN
     Route: 048
     Dates: start: 20151022, end: 20151022
  142. OMEPRAZOL//OMEPRAZOLE [Concomitant]
     Dosage: 40 MG, PRN
     Route: 042
     Dates: start: 20151019, end: 20151019
  143. TELMISARTAN. [Concomitant]
     Active Substance: TELMISARTAN
     Indication: HYPERTENSION
     Dosage: 80 MG, PRN
     Route: 048
     Dates: start: 20151021, end: 20151021
  144. TELMISARTAN. [Concomitant]
     Active Substance: TELMISARTAN
     Dosage: 80 MG, QD
     Route: 048
     Dates: start: 20151113
  145. POTASSIUM CHLORIDE. [Concomitant]
     Active Substance: POTASSIUM CHLORIDE
     Indication: MINERAL SUPPLEMENTATION
     Dosage: 1000 MG, TID
     Route: 048
     Dates: start: 20151021, end: 20151026
  146. POTASSIUM CHLORIDE. [Concomitant]
     Active Substance: POTASSIUM CHLORIDE
     Dosage: 1000 MG, TID
     Route: 048
     Dates: start: 20151030, end: 20151103
  147. MYCOPHENOLATE SODIUM [Concomitant]
     Active Substance: MYCOPHENOLATE SODIUM
     Dosage: 900 MG, QD
     Route: 065
     Dates: start: 20151111
  148. PROMETHAZINE//PROMETHAZINE HYDROCHLORIDE [Concomitant]
     Indication: HYPERSENSITIVITY
     Dosage: 25 MG, PRN
     Route: 030
     Dates: start: 20151026, end: 20151026

REACTIONS (11)
  - Red blood cells urine [Recovering/Resolving]
  - White blood cell count increased [Recovering/Resolving]
  - Incision site pain [Recovering/Resolving]
  - Upper respiratory tract infection [Recovering/Resolving]
  - Haemoglobin decreased [Recovering/Resolving]
  - Nasopharyngitis [Recovering/Resolving]
  - Lymphocyte count decreased [Recovering/Resolving]
  - Pyrexia [Recovering/Resolving]
  - Blood urea increased [Recovering/Resolving]
  - Blood creatinine increased [Recovering/Resolving]
  - Neutrophil count increased [Recovering/Resolving]

NARRATIVE: CASE EVENT DATE: 20151019
